FAERS Safety Report 5705742-3 (Version None)
Quarter: 2008Q2

REPORT INFORMATION
  Report Type: 
  Country: None (occurrence: None)
  Receive Date: 20080415
  Receipt Date: 20080404
  Transmission Date: 20081010
  Serious: Yes (Hospitalization)
  Sender: FDA-Public Use
  Company Number: B0516228A

PATIENT
  Age: 80 Year
  Sex: Male

DRUGS (10)
  1. DEROXAT [Suspect]
     Indication: DRUG USE FOR UNKNOWN INDICATION
     Dosage: 20MG PER DAY
     Route: 048
     Dates: end: 20071029
  2. LASILIX [Suspect]
     Indication: DRUG USE FOR UNKNOWN INDICATION
     Dosage: 40MG PER DAY
     Route: 048
     Dates: end: 20071029
  3. TRIATEC [Suspect]
     Indication: DRUG USE FOR UNKNOWN INDICATION
     Dosage: 5MG PER DAY
     Route: 048
     Dates: end: 20071031
  4. STAGID [Suspect]
     Indication: DRUG USE FOR UNKNOWN INDICATION
     Dosage: 700MG THREE TIMES PER DAY
     Route: 048
     Dates: end: 20071029
  5. LYRICA [Concomitant]
     Dosage: 300MG TWICE PER DAY
     Route: 048
     Dates: end: 20071029
  6. IXPRIM [Concomitant]
     Route: 048
     Dates: end: 20071029
  7. OMEPRAZOLE [Concomitant]
     Dosage: 20MG PER DAY
     Route: 048
     Dates: end: 20071029
  8. LODALES [Concomitant]
     Dosage: 20MG PER DAY
     Route: 048
  9. ALPRAZOLAM [Concomitant]
     Dosage: .5TAB PER DAY
     Route: 048
  10. ADANCOR [Concomitant]
     Dosage: 20MG PER DAY
     Route: 048

REACTIONS (10)
  - ALCOHOLISM [None]
  - DEHYDRATION [None]
  - DISORIENTATION [None]
  - DRUG ADMINISTRATION ERROR [None]
  - GENERAL PHYSICAL HEALTH DETERIORATION [None]
  - HAEMOCONCENTRATION [None]
  - HEART RATE IRREGULAR [None]
  - HYPONATRAEMIA [None]
  - REFLEXES ABNORMAL [None]
  - RENAL IMPAIRMENT [None]
